FAERS Safety Report 23180008 (Version 2)
Quarter: 2023Q4

REPORT INFORMATION
  Report Type: Spontaneous
  Country: KR (occurrence: KR)
  Receive Date: 20231114
  Receipt Date: 20231204
  Transmission Date: 20240110
  Serious: Yes (Hospitalization, Other)
  Sender: FDA-Public Use
  Company Number: KR-BAXTER-2023BAX035148

PATIENT
  Sex: Female

DRUGS (3)
  1. AMINO ACIDS\DEXTROSE\ELECTROLYTES NOS\SOYBEAN OIL [Suspect]
     Active Substance: AMINO ACIDS\DEXTROSE\ELECTROLYTES NOS\SOYBEAN OIL
     Dosage: 654 ML, AT A RATE OF ONE DROP EVERY 3.5 SECONDS (WITHIN 20CC) IV DRIP INFUSION, WINUF PERI INJECTION
     Route: 041
     Dates: end: 20231030
  2. HEPARIN [Suspect]
     Active Substance: HEPARIN SODIUM
     Indication: Anaphylactic reaction
     Dosage: THROUGH CHEMOPORT
     Route: 065
     Dates: start: 20231030
  3. SODIUM CHLORIDE [Suspect]
     Active Substance: SODIUM CHLORIDE
     Indication: Anaphylactic reaction
     Dosage: THROUGH CHEMOPORT
     Route: 065
     Dates: start: 20231030

REACTIONS (9)
  - Anaphylactic reaction [Unknown]
  - Loss of consciousness [Unknown]
  - Chills [Unknown]
  - Pyrexia [Unknown]
  - Sepsis [Unknown]
  - Metastasis [Not Recovered/Not Resolved]
  - Metastases to gallbladder [Not Recovered/Not Resolved]
  - Diarrhoea [Recovering/Resolving]
  - Abdominal pain [Recovering/Resolving]

NARRATIVE: CASE EVENT DATE: 20231030
